FAERS Safety Report 9250388 (Version 1)
Quarter: 2013Q1

REPORT INFORMATION
  Report Type: Spontaneous
  Country: US (occurrence: None)
  Receive Date: 20130305
  Receipt Date: 20130305
  Transmission Date: 20140127
  Serious: Yes (Disabling)
  Sender: FDA-Public Use
  Company Number: 163-21880-12062904

PATIENT
  Age: 60 Year
  Sex: Female
  Weight: 58.06 kg

DRUGS (4)
  1. REVLIMID (LENALIDOMIDE) [Suspect]
     Indication: PLASMA CELL MYELOMA
     Dosage: 1 IN 1 D
     Route: 048
     Dates: start: 20110830
  2. SYNTHROID (LEVOTHYROXINE SODIUM) [Concomitant]
  3. NEURONTIN (GABAPENTIN) [Concomitant]
  4. BP MED (ALL OTHER THERAPEUTIC PRODUCTS) [Concomitant]

REACTIONS (6)
  - Renal failure [None]
  - Fatigue [None]
  - Red blood cell count decreased [None]
  - Haematocrit decreased [None]
  - Haemoglobin decreased [None]
  - Platelet count decreased [None]
